FAERS Safety Report 6389694-1 (Version None)
Quarter: 2009Q4

REPORT INFORMATION
  Report Type: 
  Country: None (occurrence: None)
  Receive Date: 20091002
  Receipt Date: 20091002
  Transmission Date: 20100525
  Serious: Yes (Other)
  Sender: FDA-Public Use
  Company Number: None

PATIENT
  Age: 22 Year
  Sex: Female
  Weight: 58.9676 kg

DRUGS (1)
  1. CYMBALTA [Suspect]
     Indication: DEPRESSION
     Dosage: 30 MG TO 60 MG TAPERED TO 15 MG BID THEN TO QOD PO
     Route: 048
     Dates: start: 20080915, end: 20090830

REACTIONS (7)
  - ANXIETY [None]
  - CRYING [None]
  - HEADACHE [None]
  - HYPERSENSITIVITY [None]
  - HYPERVENTILATION [None]
  - INSOMNIA [None]
  - PARAESTHESIA [None]
